FAERS Safety Report 8011698-3 (Version None)
Quarter: 2011Q4

REPORT INFORMATION
  Report Type: 
  Country: None (occurrence: None)
  Receive Date: 20111228
  Receipt Date: 20111220
  Transmission Date: 20120403
  Serious: Yes (Disabling, Other)
  Sender: FDA-Public Use
  Company Number: US-BAXTER-2011BH040157

PATIENT
  Age: 50 Year
  Sex: Female

DRUGS (4)
  1. ASPIRIN [Suspect]
     Indication: ANTIPLATELET THERAPY
     Route: 048
  2. CLOPIDOGREL [Suspect]
     Route: 048
  3. HEPARIN SODIUM 1,000 UNITS AND SODIUM CHLORIDE 0.9% [Suspect]
     Indication: ANTICOAGULANT THERAPY
     Route: 041
  4. CLOPIDOGREL [Suspect]
     Indication: ANTIPLATELET THERAPY
     Route: 048

REACTIONS (7)
  - APHASIA [None]
  - CEREBRAL INFARCTION [None]
  - GRAND MAL CONVULSION [None]
  - HEMIPLEGIA [None]
  - HAEMORRHAGE [None]
  - BLOOD PRESSURE INCREASED [None]
  - THROMBOSIS IN DEVICE [None]
